FAERS Safety Report 18971672 (Version 2)
Quarter: 2023Q2

REPORT INFORMATION
  Report Type: Spontaneous
  Country: DE (occurrence: DE)
  Receive Date: 20210305
  Receipt Date: 20230502
  Transmission Date: 20230722
  Serious: Yes (Disabling)
  Sender: FDA-Public Use
  Company Number: DE-BIOGEN-2021BI00985901

PATIENT
  Sex: Female

DRUGS (9)
  1. AVONEX [Suspect]
     Active Substance: INTERFERON BETA-1A
     Indication: Multiple sclerosis
     Route: 050
     Dates: start: 2011
  2. AVONEX [Suspect]
     Active Substance: INTERFERON BETA-1A
  3. AVONEX [Suspect]
     Active Substance: INTERFERON BETA-1A
  4. AVONEX [Suspect]
     Active Substance: INTERFERON BETA-1A
  5. AVONEX PEN [Suspect]
     Active Substance: INTERFERON BETA-1A
     Indication: Multiple sclerosis
     Route: 050
     Dates: start: 20110301, end: 20220801
  6. AVONEX PEN [Suspect]
     Active Substance: INTERFERON BETA-1A
  7. AVONEX PEN [Suspect]
     Active Substance: INTERFERON BETA-1A
  8. AVONEX PEN [Suspect]
     Active Substance: INTERFERON BETA-1A
  9. IBUPROFEN [Concomitant]
     Active Substance: IBUPROFEN
     Indication: Prophylaxis
     Route: 050
     Dates: start: 2011

REACTIONS (1)
  - Hypokinesia [Not Recovered/Not Resolved]

NARRATIVE: CASE EVENT DATE: 20160101
